FAERS Safety Report 7234818-7 (Version None)
Quarter: 2011Q1

REPORT INFORMATION
  Report Type: 
  Country: None (occurrence: None)
  Receive Date: 20110114
  Receipt Date: 20110114
  Transmission Date: 20110831
  Serious: No
  Sender: FDA-Public Use
  Company Number: None

PATIENT
  Age: 78 Year
  Sex: Male
  Weight: 106 kg

DRUGS (1)
  1. LISINOPRIL [Suspect]
     Dosage: 5 MG EVERY DAY PO
     Route: 048
     Dates: start: 20050715, end: 20101122

REACTIONS (1)
  - ANGIOEDEMA [None]
